FAERS Safety Report 21033103 (Version 1)
Quarter: 2022Q3

REPORT INFORMATION
  Report Type: Spontaneous
  Country: US (occurrence: US)
  Receive Date: 20220701
  Receipt Date: 20220701
  Transmission Date: 20221026
  Serious: Yes (Other)
  Sender: FDA-Public Use
  Company Number: US-PFIZER INC-202101807102

PATIENT
  Age: 91 Year
  Sex: Male
  Weight: 65.76 kg

DRUGS (1)
  1. VYNDAMAX [Suspect]
     Active Substance: TAFAMIDIS
     Dosage: UNK

REACTIONS (4)
  - Hip surgery [Unknown]
  - Dysphagia [Unknown]
  - Oesophageal pain [Unknown]
  - Abdominal pain upper [Unknown]
